FAERS Safety Report 4693236-6 (Version None)
Quarter: 2005Q2

REPORT INFORMATION
  Report Type: 
  Country: None (occurrence: None)
  Receive Date: 20050615
  Receipt Date: 20050517
  Transmission Date: 20051028
  Serious: Yes (Death)
  Sender: FDA-Public Use
  Company Number: 11208

PATIENT
  Age: 58 Year
  Sex: Male

DRUGS (13)
  1. METHOTREXATE [Suspect]
     Indication: GASTRIC CANCER
     Dosage: 170 MG WEEKLY
     Route: 042
     Dates: start: 20050428, end: 20050511
  2. FLUOROURACIL [Suspect]
     Indication: GASTRIC CANCER
     Dosage: 1 G WEEKLY
     Route: 042
     Dates: start: 20050428, end: 20050511
  3. LEUCOVORIN [Concomitant]
  4. DEXAMETHASONE [Concomitant]
  5. CAMOSTAT MESILATE [Concomitant]
  6. HERBAL EXTRACTS [Concomitant]
  7. ENZYMES [Concomitant]
  8. CYANOBALAMIN WITH INTRINSIC FACTOR CO [Concomitant]
  9. ACETAZOLAMIDE [Concomitant]
  10. GLYCYRON [Concomitant]
  11. CAMOSTAT MESILATE [Concomitant]
  12. JUZEN-TAIHO-TO [Concomitant]
  13. DIGESTER [Concomitant]

REACTIONS (8)
  - CARDIO-RESPIRATORY ARREST [None]
  - CHEMOTHERAPEUTIC DRUG LEVEL DECREASED [None]
  - CHEMOTHERAPEUTIC DRUG LEVEL INCREASED [None]
  - CLOSTRIDIUM COLITIS [None]
  - DISSEMINATED INTRAVASCULAR COAGULATION [None]
  - DYSPHAGIA [None]
  - GRANULOCYTOPENIA [None]
  - THROMBOCYTOPENIA [None]
